FAERS Safety Report 16678248 (Version 1)
Quarter: 2019Q3

REPORT INFORMATION
  Report Type: Spontaneous
  Country: US (occurrence: US)
  Receive Date: 20190806
  Receipt Date: 20190806
  Transmission Date: 20191004
  Serious: Yes (Other)
  Sender: FDA-Public Use
  Company Number: None

PATIENT
  Age: 73 Year
  Sex: Male
  Weight: 105.5 kg

DRUGS (18)
  1. ACYCLOVIR 800MG BID [Concomitant]
  2. FLUCONAZOLE 200MG [Concomitant]
     Active Substance: FLUCONAZOLE
  3. PANTOPRAZOLE 40MG BID [Concomitant]
  4. TAMSULOSIN 0.4MG [Concomitant]
     Active Substance: TAMSULOSIN
  5. DAPSONE 100 MG [Concomitant]
  6. AMLODIPINE [Concomitant]
     Active Substance: AMLODIPINE BESYLATE
  7. VITAMIN B12 QOD [Concomitant]
  8. VANCOMYCIN 125MG BID [Concomitant]
  9. JADENU [Suspect]
     Active Substance: DEFERASIROX
     Indication: ACUTE MYELOID LEUKAEMIA
     Route: 048
     Dates: start: 20190712
  10. TRADJENTA [Concomitant]
     Active Substance: LINAGLIPTIN
  11. URSODIOL 300MG BID [Concomitant]
  12. LANTUS SOLOSTAR [Concomitant]
     Active Substance: INSULIN GLARGINE
  13. TACROLMUS 0.5MG [Concomitant]
  14. FOLIC ACID 0.8MG [Concomitant]
  15. LORATIDINE 10MG [Concomitant]
  16. CARVEDILOL 25MG BID [Concomitant]
  17. ALLOPURINOL 300MG [Concomitant]
     Active Substance: ALLOPURINOL
  18. MAGNESIUM 400MG [Concomitant]
     Active Substance: MAGNESIUM

REACTIONS (6)
  - Fatigue [None]
  - Weight decreased [None]
  - Diarrhoea [None]
  - Dysgeusia [None]
  - Decreased appetite [None]
  - Constipation [None]

NARRATIVE: CASE EVENT DATE: 20190801
